FAERS Safety Report 10418157 (Version 1)
Quarter: 2014Q2

REPORT INFORMATION
  Report Type: Spontaneous
  Country: US (occurrence: None)
  Receive Date: 20140609
  Receipt Date: 20140609
  Transmission Date: 20141212
  Serious: No
  Sender: FDA-Public Use
  Company Number: 2014TUS002450

PATIENT
  Age: 45 Year
  Sex: Female
  Weight: 63.5 kg

DRUGS (11)
  1. BRINTELLIX [Suspect]
     Indication: MAJOR DEPRESSION
     Route: 048
     Dates: start: 20140319
  2. ADDERALL (AMFETAMINE ASPARTATE, AMFETAMINE SULDATE, DEXAMFETAMINE SACCHARATE, DEXAMFETAMINE SULFATE) [Concomitant]
  3. SPIRONOLACTONE [Concomitant]
  4. OCELLA (DROSPIRENONE, ETHINYLESTRADIOL) [Concomitant]
  5. CLONAZEPAM [Concomitant]
  6. TRAZODONE [Concomitant]
  7. ACYCLOVIR [Concomitant]
  8. LYSIN (LYSINE) [Concomitant]
  9. ALEVE (NAPROXEN SODIUM) [Concomitant]
  10. VITAMIN E (TOCOPHEROL) [Concomitant]
  11. VITAMIN D3 (COLECALCIFEROL) [Concomitant]

REACTIONS (3)
  - Pruritus [None]
  - Nausea [None]
  - Vomiting [None]
